FAERS Safety Report 10060684 (Version 2)
Quarter: 2014Q2

REPORT INFORMATION
  Report Type: Spontaneous
  Country: US (occurrence: US)
  Receive Date: 20140404
  Receipt Date: 20140404
  Transmission Date: 20141212
  Serious: Yes (Other)
  Sender: FDA-Public Use
  Company Number: US-ELI_LILLY_AND_COMPANY-US201312002672

PATIENT
  Sex: Male
  Weight: 113.38 kg

DRUGS (20)
  1. HUMALOG LISPRO [Suspect]
     Indication: DIABETES MELLITUS
     Dosage: 26 U, TID
     Route: 058
     Dates: start: 20130522
  2. HUMALOG LISPRO [Suspect]
     Dosage: 20 U, TID
     Route: 058
  3. LANTUS [Concomitant]
     Dosage: 60 U, QD
     Route: 058
  4. ASPIRIN [Concomitant]
     Dosage: 1 DF, QD
     Route: 048
     Dates: end: 20131026
  5. BABY ASPIRIN [Concomitant]
     Dosage: 81 MG, QD
     Dates: start: 20131226
  6. LOPID [Concomitant]
     Dosage: 1 DF, BID
     Route: 048
  7. PANTOPRAZOLE SODIUM [Concomitant]
     Dosage: 1 DF, QD
     Route: 048
  8. CVS SPECTRAVITE PERFORMANCE [Concomitant]
     Dosage: 1 DF, QD
  9. NITROGLYCERIN [Concomitant]
     Dosage: 1 DF, PRN
     Route: 060
  10. THIAMINE HCL [Concomitant]
     Dosage: 1 DF, QD
  11. ALDACTONE                          /00006201/ [Concomitant]
     Dosage: 1 DF, QD
     Route: 048
  12. METOPROLOL SUCCINATE [Concomitant]
     Dosage: 1 DF, QD
     Route: 048
  13. LISINOPRIL [Concomitant]
     Dosage: 1 DF, QD
  14. FUROSEMIDE [Concomitant]
     Dosage: 1 DF, QD
  15. LEVOTHYROXINE SODIUM [Concomitant]
     Dosage: 1 DF, 5/W
     Route: 048
  16. LEVOTHYROXINE SODIUM [Concomitant]
     Dosage: 2 DF, 2/W
     Route: 048
  17. VITAMIN B-1 [Concomitant]
     Dosage: 1 DF, QD
     Route: 048
  18. KAYEXALATE [Concomitant]
     Dosage: UNK, PRN
     Dates: end: 20130926
  19. ZESTRIL [Concomitant]
     Dosage: 1 DF, QD
     Route: 048
  20. CYCLOBENZAPRINE HYDROCHLORIDE [Concomitant]
     Dosage: 1 DF, BID
     Dates: end: 20131126

REACTIONS (8)
  - Epistaxis [Recovered/Resolved]
  - Anaemia [Unknown]
  - Thrombocytopenia [Unknown]
  - Hyperkalaemia [Recovered/Resolved]
  - Blood glucose abnormal [Unknown]
  - Blood glucose increased [Unknown]
  - Glycosylated haemoglobin increased [Unknown]
  - Blood glucose decreased [Unknown]
